FAERS Safety Report 17773576 (Version 2)
Quarter: 2020Q2

REPORT INFORMATION
  Report Type: Spontaneous
  Country: ES (occurrence: ES)
  Receive Date: 20200513
  Receipt Date: 20200517
  Transmission Date: 20200714
  Serious: Yes (Hospitalization)
  Sender: FDA-Public Use
  Company Number: ES-ABBVIE-20K-144-3398903-00

PATIENT
  Age: 80 Year
  Sex: Female

DRUGS (5)
  1. ENOXAPARIN [Concomitant]
     Active Substance: ENOXAPARIN
     Indication: PRODUCT USED FOR UNKNOWN INDICATION
     Route: 058
     Dates: start: 2020
  2. FUROSEMIDE. [Concomitant]
     Active Substance: FUROSEMIDE
     Indication: PRODUCT USED FOR UNKNOWN INDICATION
     Route: 042
  3. GLECAPREVIR/PIBRENTASVIR [Suspect]
     Active Substance: GLECAPREVIR\PIBRENTASVIR
     Indication: HEPATITIS C
     Route: 048
  4. BISOPROLOL [Concomitant]
     Active Substance: BISOPROLOL
     Indication: PRODUCT USED FOR UNKNOWN INDICATION
     Route: 048
  5. CEFTRIAXONE. [Concomitant]
     Active Substance: CEFTRIAXONE
     Indication: PRODUCT USED FOR UNKNOWN INDICATION
     Route: 042
     Dates: start: 2020, end: 2020

REACTIONS (16)
  - Skin ulcer [Unknown]
  - Blood lactate dehydrogenase increased [Unknown]
  - Cardiac failure [Unknown]
  - Atrial flutter [Unknown]
  - C-reactive protein increased [Unknown]
  - Gamma-glutamyltransferase decreased [Unknown]
  - Tachycardia [Unknown]
  - Bronchitis [Recovered/Resolved]
  - Congestive hepatopathy [Unknown]
  - Pleural effusion [Unknown]
  - Left ventricular failure [Unknown]
  - Oedema peripheral [Unknown]
  - Aortic stenosis [Unknown]
  - Aspartate aminotransferase increased [Unknown]
  - Troponin T increased [Unknown]
  - Oedema [Unknown]

NARRATIVE: CASE EVENT DATE: 2020
